FAERS Safety Report 10452065 (Version 1)
Quarter: 2014Q3

REPORT INFORMATION
  Report Type: Spontaneous
  Country: US (occurrence: None)
  Receive Date: 20140912
  Receipt Date: 20140912
  Transmission Date: 20150326
  Serious: Yes (Hospitalization)
  Sender: FDA-Public Use
  Company Number: None

PATIENT
  Age: 39 Year
  Sex: Male
  Weight: 79.83 kg

DRUGS (4)
  1. ABRAXANE [Suspect]
     Active Substance: PACLITAXEL
     Indication: PANCREATIC CARCINOMA METASTATIC
     Dosage: 150 MG/M2 Q 2 WEEKS
     Dates: start: 20140808
  2. 5-FU [Suspect]
     Active Substance: FLUOROURACIL
     Dosage: Q2WEEKS?
     Dates: start: 20140825
  3. OXALIPLATIN. [Suspect]
     Active Substance: OXALIPLATIN
     Dosage: Q2WEEKS
     Dates: start: 20140825
  4. FOLINIC ACID [Suspect]
     Active Substance: LEUCOVORIN
     Dosage: Q 2 WKS
     Dates: start: 20140825

REACTIONS (2)
  - Blood culture positive [None]
  - Staphylococcal infection [None]

NARRATIVE: CASE EVENT DATE: 20140910
